FAERS Safety Report 5022367-6 (Version None)
Quarter: 2006Q2

REPORT INFORMATION
  Report Type: 
  Country: None (occurrence: None)
  Receive Date: 20060502
  Receipt Date: 20060222
  Transmission Date: 20061013
  Serious: Yes (Life-Threatening)
  Sender: FDA-Public Use
  Company Number: PHEH2006US01724

PATIENT
  Sex: Female

DRUGS (1)
  1. LOTREL [Suspect]
     Indication: HYPERTENSION
     Dosage: 5/20MG, ORAL
     Route: 048
     Dates: start: 19990112, end: 20060126

REACTIONS (1)
  - ANGIONEUROTIC OEDEMA [None]
